FAERS Safety Report 18899884 (Version 1)
Quarter: 2021Q1

REPORT INFORMATION
  Report Type: Spontaneous
  Country: US (occurrence: US)
  Receive Date: 20210216
  Receipt Date: 20210216
  Transmission Date: 20210420
  Serious: Yes (Other)
  Sender: FDA-Public Use
  Company Number: US-PFIZER INC-2018066603

PATIENT
  Age: 62 Year
  Sex: Male

DRUGS (1)
  1. LYRICA [Suspect]
     Active Substance: PREGABALIN
     Indication: MULTIPLE SCLEROSIS
     Dosage: 600 MG, DAILY (150 MG CAPSULE, 1 EVERY MORNING, 1 AT NOON AND 2 AT BEDTIME)

REACTIONS (2)
  - Off label use [Unknown]
  - Intellectual disability [Unknown]
